FAERS Safety Report 9581861 (Version 3)
Quarter: 2013Q4

REPORT INFORMATION
  Report Type: Spontaneous
  Country: JP (occurrence: JP)
  Receive Date: 20131002
  Receipt Date: 20131007
  Transmission Date: 20140711
  Serious: Yes (Hospitalization)
  Sender: FDA-Public Use
  Company Number: CHNY2013JP002108

PATIENT
  Sex: Female

DRUGS (1)
  1. SENNOSIDES A AND B [Suspect]
     Indication: CONSTIPATION
     Dosage: 2 DF, BID

REACTIONS (6)
  - Large intestine perforation [Recovered/Resolved]
  - Abdominal pain [Recovered/Resolved]
  - Diarrhoea [Recovered/Resolved]
  - Vomiting [Recovered/Resolved]
  - Diverticulitis [Recovered/Resolved]
  - Large intestinal ulcer [Recovered/Resolved]
